FAERS Safety Report 9412213 (Version 1)
Quarter: 2013Q3

REPORT INFORMATION
  Report Type: Report from Study
  Country: AU (occurrence: AU)
  Receive Date: 20130722
  Receipt Date: 20130722
  Transmission Date: 20140515
  Serious: Yes (Other)
  Sender: FDA-Public Use
  Company Number: PHHY2013AU076479

PATIENT
  Age: 72 Year
  Sex: Male

DRUGS (1)
  1. SANDOSTATIN LAR [Suspect]
     Indication: CARCINOID SYNDROME
     Dosage: 60 MG, UNK
     Route: 030

REACTIONS (3)
  - Rickets [Not Recovered/Not Resolved]
  - Vitamin D deficiency [Not Recovered/Not Resolved]
  - Pain [Not Recovered/Not Resolved]
